FAERS Safety Report 11196499 (Version 1)
Quarter: 2015Q2

REPORT INFORMATION
  Report Type: Spontaneous
  Country: IL (occurrence: IL)
  Receive Date: 20150617
  Receipt Date: 20150617
  Transmission Date: 20150821
  Serious: Yes (Other)
  Sender: FDA-Public Use
  Company Number: IL-BAXTER-2015BAX032943

PATIENT
  Age: 63 Year
  Sex: Female

DRUGS (1)
  1. NACL 0.9% INTRAVENOUS SOLUTION BP [Suspect]
     Active Substance: SODIUM CHLORIDE
     Indication: POSTOPERATIVE CARE
     Route: 042

REACTIONS (2)
  - Infusion related reaction [Recovered/Resolved]
  - Hypertension [Recovered/Resolved]
